FAERS Safety Report 9908201 (Version 1)
Quarter: 2014Q1

REPORT INFORMATION
  Report Type: Spontaneous
  Country: US (occurrence: None)
  Receive Date: 20140212
  Receipt Date: 20140212
  Transmission Date: 20141002
  Serious: Yes (Other)
  Sender: FDA-Public Use
  Company Number: None

PATIENT
  Age: 55 Year
  Sex: Female
  Weight: 57.61 kg

DRUGS (14)
  1. TRAMADOL HCL [Suspect]
     Indication: BACK PAIN
     Route: 048
     Dates: start: 20140123
  2. CYCLOBANZAPRINE [Concomitant]
  3. ASPIRIN [Concomitant]
  4. TUMERIC [Concomitant]
  5. N.A.C. [Concomitant]
  6. CRANBERRY [Concomitant]
  7. MAGNESIUM [Concomitant]
  8. BROMELAIN [Concomitant]
  9. ZYFLAMEND [Concomitant]
  10. COQ10 [Concomitant]
  11. MILK THISTLE [Concomitant]
  12. INE-ZYME [Concomitant]
  13. POTASSIUM [Concomitant]
  14. ALPHALIPOIC ACID [Concomitant]

REACTIONS (16)
  - Hypopnoea [None]
  - Hallucination [None]
  - Heart rate increased [None]
  - Rash [None]
  - Throat tightness [None]
  - Swollen tongue [None]
  - Muscle twitching [None]
  - Constipation [None]
  - Dry skin [None]
  - Dizziness [None]
  - Judgement impaired [None]
  - Tinnitus [None]
  - Nasal dryness [None]
  - Eating disorder [None]
  - Insomnia [None]
  - Balance disorder [None]
